FAERS Safety Report 7701954-8 (Version None)
Quarter: 2011Q3

REPORT INFORMATION
  Report Type: 
  Country: None (occurrence: None)
  Receive Date: 20110822
  Receipt Date: 20110810
  Transmission Date: 20111222
  Serious: Yes (Other)
  Sender: FDA-Public Use
  Company Number: PHHO2010GB16914

PATIENT
  Sex: Male

DRUGS (10)
  1. QUININE SULFATE [Concomitant]
  2. ALLOPURINOL [Concomitant]
  3. ZOLEDRONIC [Suspect]
     Dosage: 4 MG, UNK
     Route: 042
     Dates: start: 20070918, end: 20090818
  4. BISPHOSPHONATES [Concomitant]
  5. ASPIRIN [Concomitant]
  6. HORMONES [Concomitant]
  7. ZOLADEX [Concomitant]
  8. ATENOLOL [Concomitant]
  9. AMLODIPINE [Concomitant]
  10. ACETAMINOPHEN [Concomitant]

REACTIONS (4)
  - OSTEONECROSIS OF JAW [None]
  - INFECTION [None]
  - NECROSIS [None]
  - PAIN [None]
